FAERS Safety Report 15781136 (Version 1)
Quarter: 2018Q4

REPORT INFORMATION
  Report Type: Spontaneous
  Country: US (occurrence: US)
  Receive Date: 20181231
  Receipt Date: 20181231
  Transmission Date: 20190205
  Serious: No
  Sender: FDA-Public Use
  Company Number: None

PATIENT
  Sex: Female
  Weight: 108 kg

DRUGS (4)
  1. MULTI VITAMIN FOR WOMEN [Concomitant]
  2. FLUOXETINE HCL 40 MG CAPSULE TEVA USA [Suspect]
     Active Substance: FLUOXETINE HYDROCHLORIDE
     Indication: DEPRESSION
     Route: 048
  3. LEVOTHYROXINE. [Concomitant]
     Active Substance: LEVOTHYROXINE
  4. PROZAC [Concomitant]
     Active Substance: FLUOXETINE HYDROCHLORIDE

REACTIONS (6)
  - Drug effect decreased [None]
  - Product substitution issue [None]
  - Abdominal discomfort [None]
  - Dyspepsia [None]
  - Therapeutic response changed [None]
  - Foaming at mouth [None]
